APPROVED DRUG PRODUCT: TAGAMET HYDROCHLORIDE IN SODIUM CHLORIDE 0.9% IN PLASTIC CONTAINER
Active Ingredient: CIMETIDINE HYDROCHLORIDE
Strength: EQ 6MG BASE/ML **Federal Register determination that product was not discontinued or withdrawn for safety or effectiveness reasons**
Dosage Form/Route: INJECTABLE;INJECTION
Application: N019434 | Product #001
Applicant: GLAXOSMITHKLINE
Approved: Oct 31, 1985 | RLD: Yes | RS: No | Type: DISCN